FAERS Safety Report 9423451 (Version 1)
Quarter: 2013Q3

REPORT INFORMATION
  Report Type: Spontaneous
  Country: US (occurrence: US)
  Receive Date: 20130726
  Receipt Date: 20130726
  Transmission Date: 20140515
  Serious: No
  Sender: FDA-Public Use
  Company Number: US-GALDERMA-US13000172

PATIENT
  Age: 48 Year
  Sex: Female

DRUGS (3)
  1. DIFFERIN (ADAPALENE) GEL, 0.3% [Suspect]
     Indication: ACNE
     Route: 061
  2. CETAPHIL RESTORADERM MOISTURIZER [Suspect]
     Indication: SEBORRHOEIC DERMATITIS
     Route: 061
     Dates: start: 20130115
  3. CLINDAMYCIN TOPICAL 1% [Suspect]
     Indication: SKIN IRRITATION
     Route: 061
     Dates: start: 20130115

REACTIONS (2)
  - Skin burning sensation [Not Recovered/Not Resolved]
  - Erythema [Not Recovered/Not Resolved]
